FAERS Safety Report 20735047 (Version 2)
Quarter: 2022Q2

REPORT INFORMATION
  Report Type: Spontaneous
  Country: US (occurrence: US)
  Receive Date: 20220421
  Receipt Date: 20220504
  Transmission Date: 20220721
  Serious: Yes (Life-Threatening, Hospitalization)
  Sender: FDA-Public Use
  Company Number: US-TEVA-2022-US-2028386

PATIENT
  Age: 58 Year
  Sex: Male

DRUGS (7)
  1. METOPROLOL [Suspect]
     Active Substance: METOPROLOL
     Indication: Atrial fibrillation
     Route: 065
  2. SOTALOL [Interacting]
     Active Substance: SOTALOL
     Indication: Atrial fibrillation
     Route: 065
  3. CARVEDILOL [Interacting]
     Active Substance: CARVEDILOL
     Indication: Atrial fibrillation
     Route: 065
  4. NOREPINEPHRINE [Concomitant]
     Active Substance: NOREPINEPHRINE
     Indication: Cardiovascular disorder
     Route: 065
  5. EPINEPHRINE [Concomitant]
     Active Substance: EPINEPHRINE
     Indication: Cardiovascular disorder
     Route: 065
  6. VASOPRESSIN [Concomitant]
     Active Substance: VASOPRESSIN
     Indication: Cardiovascular disorder
     Route: 065
  7. Inotrope Dobutamine [Concomitant]
     Indication: Cardiovascular disorder
     Route: 065

REACTIONS (4)
  - Renal injury [Unknown]
  - Tachycardia [Unknown]
  - Shock [Unknown]
  - Drug interaction [Unknown]
